FAERS Safety Report 7198485-3 (Version None)
Quarter: 2010Q4

REPORT INFORMATION
  Report Type: 
  Country: None (occurrence: None)
  Receive Date: 20101214
  Receipt Date: 20101202
  Transmission Date: 20110411
  Serious: Yes (Other)
  Sender: FDA-Public Use
  Company Number: NL-GDP-10409483

PATIENT
  Sex: Female

DRUGS (2)
  1. METVIXIA [Suspect]
     Indication: ACTINIC KERATOSIS
     Dosage: (1 DF TOPICAL)
     Route: 061
     Dates: start: 20100614, end: 20100614
  2. DERMESTRIL [Concomitant]

REACTIONS (4)
  - ERYTHEMA [None]
  - EYE PAIN [None]
  - OEDEMA [None]
  - RETINAL VEIN OCCLUSION [None]
